FAERS Safety Report 4507885-9 (Version None)
Quarter: 2004Q4

REPORT INFORMATION
  Report Type: 
  Country: None (occurrence: None)
  Receive Date: 20041123
  Receipt Date: 20041018
  Transmission Date: 20050328
  Serious: Yes (Hospitalization, Disabling, Other)
  Sender: FDA-Public Use
  Company Number: US-MERCK-0410USA02763

PATIENT
  Age: 87 Year
  Sex: Female
  Weight: 53 kg

DRUGS (6)
  1. VIOXX [Suspect]
     Indication: OSTEOARTHRITIS
     Route: 048
     Dates: start: 20040604, end: 20040827
  2. VIOXX [Suspect]
     Indication: SPINAL COLUMN STENOSIS
     Route: 048
     Dates: start: 20040604, end: 20040827
  3. LIPITOR [Concomitant]
     Route: 065
  4. LEXAPRO [Concomitant]
     Route: 065
  5. LISINOPRIL [Concomitant]
     Route: 065
  6. ACTONEL [Concomitant]
     Route: 065

REACTIONS (5)
  - ANAEMIA [None]
  - GASTRIC ULCER [None]
  - GASTROINTESTINAL HAEMORRHAGE [None]
  - HYPERHIDROSIS [None]
  - HYPOTENSION [None]
